FAERS Safety Report 16522941 (Version 1)
Quarter: 2019Q3

REPORT INFORMATION
  Report Type: Spontaneous
  Country: US (occurrence: US)
  Receive Date: 20190702
  Receipt Date: 20190702
  Transmission Date: 20191004
  Serious: No
  Sender: FDA-Public Use
  Company Number: US-TEVA-2019-US-1060425

PATIENT
  Age: 83 Year
  Sex: Male

DRUGS (1)
  1. FLUOCINONIDE CREAM [Suspect]
     Active Substance: FLUOCINONIDE
     Indication: PHOTOTHERAPY
     Dates: start: 20190425

REACTIONS (1)
  - Therapeutic response unexpected [Unknown]

NARRATIVE: CASE EVENT DATE: 20190425
